FAERS Safety Report 5671203-3 (Version None)
Quarter: 2008Q1

REPORT INFORMATION
  Report Type: 
  Country: None (occurrence: None)
  Receive Date: 20080318
  Receipt Date: 20080310
  Transmission Date: 20080703
  Serious: Yes (Hospitalization)
  Sender: FDA-Public Use
  Company Number: JP-ELI_LILLY_AND_COMPANY-JP200707001722

PATIENT
  Sex: Female
  Weight: 51 kg

DRUGS (3)
  1. RALOXIFENE HYDROCHLORIDE [Suspect]
     Indication: OSTEOPOROSIS POSTMENOPAUSAL
     Dosage: 60 MG, DAILY (1/D)
     Route: 048
     Dates: start: 20041203, end: 20051104
  2. NEUROTROPIN [Concomitant]
     Indication: NEUROPATHY PERIPHERAL
     Dosage: 3 D/F, DAILY (1/D)
     Route: 048
     Dates: start: 20041203, end: 20050512
  3. ULGUT [Concomitant]
     Indication: PROPHYLAXIS
     Dosage: 3 D/F, DAILY (1/D)
     Route: 048
     Dates: start: 20041203, end: 20050512

REACTIONS (1)
  - SICK SINUS SYNDROME [None]
